FAERS Safety Report 23621956 (Version 1)
Quarter: 2024Q1

REPORT INFORMATION
  Report Type: Other
  Country: CN (occurrence: None)
  Receive Date: 20240312
  Receipt Date: 20240312
  Transmission Date: 20240409
  Serious: Yes (Death)
  Sender: FDA-Public Use
  Company Number: CN-ROCHE-3522289

PATIENT

DRUGS (7)
  1. MYCOPHENOLATE MOFETIL [Suspect]
     Active Substance: MYCOPHENOLATE MOFETIL
     Indication: Prophylaxis against graft versus host disease
     Route: 065
  2. CYCLOSPORINE [Suspect]
     Active Substance: CYCLOSPORINE
     Indication: Prophylaxis against graft versus host disease
     Route: 065
  3. METHOTREXATE [Suspect]
     Active Substance: METHOTREXATE
     Indication: Prophylaxis against graft versus host disease
     Route: 065
  4. CYTARABINE [Suspect]
     Active Substance: CYTARABINE
     Indication: Prophylaxis against transplant rejection
     Dosage: 4 G/M2/DAY, I.V. ON DAYS-10 AND-9
     Route: 042
  5. BUSULFAN [Suspect]
     Active Substance: BUSULFAN
     Indication: Prophylaxis against transplant rejection
     Dosage: FOR PATIENTS WITH A WEIGHT }12.5 KG, THE DOSAGE OF BU WAS 3.2 MG/KG/DAY, I.V., AND FOR PATIENTS WITH
     Route: 042
  6. CYCLOPHOSPHAMIDE [Suspect]
     Active Substance: CYCLOPHOSPHAMIDE
     Indication: Prophylaxis against transplant rejection
     Dosage: 1.8 G/M2/DAY, I.V.) ON DAYS-5AND-4
     Route: 042
  7. SEMUSTINE [Suspect]
     Active Substance: SEMUSTINE
     Indication: Prophylaxis against transplant rejection
     Dosage: 250 MG/M2, P.O. ON DAY-3
     Route: 048

REACTIONS (6)
  - Pneumonia cytomegaloviral [Fatal]
  - Haemorrhage [Fatal]
  - Pneumonia [Fatal]
  - Hepatic failure [Fatal]
  - Respiratory failure [Fatal]
  - Epstein-Barr viraemia [Unknown]
